FAERS Safety Report 9769253 (Version 1)
Quarter: 2013Q4

REPORT INFORMATION
  Report Type: Spontaneous
  Country: CA (occurrence: CA)
  Receive Date: 20131218
  Receipt Date: 20131218
  Transmission Date: 20140711
  Serious: Yes (Hospitalization)
  Sender: FDA-Public Use
  Company Number: CA-BAYER-2013-153164

PATIENT
  Sex: Female

DRUGS (1)
  1. YASMIN 21 [Suspect]
     Route: 065

REACTIONS (1)
  - Malaise [Unknown]
